FAERS Safety Report 9301943 (Version 1)
Quarter: 2013Q2

REPORT INFORMATION
  Report Type: Spontaneous
  Country: US (occurrence: US)
  Receive Date: 20130521
  Receipt Date: 20130521
  Transmission Date: 20140414
  Serious: Yes (Other)
  Sender: FDA-Public Use
  Company Number: US-MYLANLABS-2013S1010279

PATIENT
  Age: 14 Year
  Sex: Male

DRUGS (8)
  1. RIFAMPICIN [Suspect]
     Indication: LATENT TUBERCULOSIS
     Dosage: 10 MG/KG
     Route: 065
  2. TACROLIMUS [Interacting]
     Indication: IMMUNOSUPPRESSANT DRUG THERAPY
     Dosage: AVERAGE 1.06 MG/DAY
     Route: 065
  3. KETOCONAZOLE [Interacting]
     Indication: DRUG LEVEL BELOW THERAPEUTIC
     Route: 065
  4. VANCOMYCIN [Suspect]
     Route: 065
  5. RIFABUTIN [Interacting]
     Dosage: 5 MG/KG
     Route: 065
  6. MYCOPHENOLATE MOFETIL [Concomitant]
     Indication: IMMUNOSUPPRESSANT DRUG THERAPY
     Route: 065
  7. METHYLPREDNISOLONE [Concomitant]
     Indication: IMMUNOSUPPRESSANT DRUG THERAPY
     Dosage: TAPER
     Route: 065
  8. MEROPENEM [Concomitant]
     Indication: PNEUMONIA
     Route: 065

REACTIONS (8)
  - Drug level below therapeutic [Recovering/Resolving]
  - Drug interaction [Recovering/Resolving]
  - Electrocardiogram QT prolonged [Unknown]
  - Potentiating drug interaction [Unknown]
  - Renal failure acute [Unknown]
  - Toxicity to various agents [Unknown]
  - Immunosuppressant drug level decreased [Not Recovered/Not Resolved]
  - Drug interaction [Not Recovered/Not Resolved]
